FAERS Safety Report 9921478 (Version 1)
Quarter: 2014Q1

REPORT INFORMATION
  Report Type: Spontaneous
  Country: AT (occurrence: AT)
  Receive Date: 20140225
  Receipt Date: 20140225
  Transmission Date: 20141002
  Serious: Yes (Death)
  Sender: FDA-Public Use
  Company Number: AT-BRISTOL-MYERS SQUIBB COMPANY-20209854

PATIENT
  Sex: Female

DRUGS (1)
  1. ONGLYZA TABS [Suspect]

REACTIONS (1)
  - Death [Fatal]
